FAERS Safety Report 12127684 (Version 1)
Quarter: 2016Q1

REPORT INFORMATION
  Report Type: Spontaneous
  Country: US (occurrence: None)
  Receive Date: 20160229
  Receipt Date: 20160229
  Transmission Date: 20160526
  Serious: Yes (Life-Threatening, Other)
  Sender: FDA-Public Use
  Company Number: US-MDT-ADR-2016-00156

PATIENT
  Age: 75 Year
  Sex: Male

DRUGS (1)
  1. BACLOFEN INTRATHECAL [Suspect]
     Active Substance: BACLOFEN
     Indication: MUSCLE SPASTICITY

REACTIONS (7)
  - Hypotension [None]
  - Confusional state [None]
  - Coma [None]
  - Hypothermia [None]
  - Bradycardia [None]
  - Adrenal insufficiency [None]
  - Unresponsive to stimuli [None]
